FAERS Safety Report 11892005 (Version 3)
Quarter: 2016Q1

REPORT INFORMATION
  Report Type: Spontaneous
  Country: DE (occurrence: DE)
  Receive Date: 20160106
  Receipt Date: 20160126
  Transmission Date: 20160526
  Serious: Yes (Other)
  Sender: FDA-Public Use
  Company Number: DE-PFIZER INC-2015413070

PATIENT
  Age: 87 Year
  Sex: Male

DRUGS (2)
  1. MARCUMAR [Concomitant]
     Active Substance: PHENPROCOUMON
     Dosage: UNK
  2. SORTIS [Suspect]
     Active Substance: ATORVASTATIN
     Indication: BLOOD CHOLESTEROL INCREASED
     Dosage: 20 MG, DAILY
     Dates: start: 2013

REACTIONS (7)
  - Insomnia [Unknown]
  - Deafness [Unknown]
  - Ageusia [Unknown]
  - Dizziness [Unknown]
  - Anosmia [Unknown]
  - Pruritus [Unknown]
  - Vestibular disorder [Unknown]
